FAERS Safety Report 16792407 (Version 4)
Quarter: 2020Q3

REPORT INFORMATION
  Report Type: Spontaneous
  Country: CA (occurrence: CA)
  Receive Date: 20190910
  Receipt Date: 20200729
  Transmission Date: 20201102
  Serious: Yes (Other)
  Sender: FDA-Public Use
  Company Number: CA-TEVA-2019-CA-1105352

PATIENT
  Age: 58 Year
  Sex: Male

DRUGS (4)
  1. ZOPICLONE [Concomitant]
     Active Substance: ZOPICLONE
     Dosage: 10 MILLIGRAM DAILY;
     Route: 065
  2. LAMOTRIGINE. [Suspect]
     Active Substance: LAMOTRIGINE
     Indication: BIPOLAR II DISORDER
     Dosage: 50 MILLIGRAM DAILY;
     Route: 065
  3. LITHIUM. [Concomitant]
     Active Substance: LITHIUM
     Dosage: 450 MILLIGRAM DAILY;
     Route: 065
  4. QUETIAPINE. [Concomitant]
     Active Substance: QUETIAPINE
     Dosage: 100 MILLIGRAM DAILY;
     Route: 065

REACTIONS (2)
  - Off label use [Unknown]
  - Obsessive-compulsive disorder [Recovered/Resolved]
